FAERS Safety Report 4888559-1 (Version None)
Quarter: 2005Q4

REPORT INFORMATION
  Report Type: 
  Country: None (occurrence: None)
  Receive Date: 20051215
  Receipt Date: 20041118
  Transmission Date: 20060501
  Serious: Yes (Other)
  Sender: FDA-Public Use
  Company Number: 2004229806US

PATIENT
  Sex: Female

DRUGS (5)
  1. BEXTRA [Suspect]
     Indication: ARTHROPATHY
     Dosage: 10 MG (10 MG, 1 IN 1 D), ORAL
     Route: 048
     Dates: start: 20040816
  2. CLONIDINE [Concomitant]
  3. FLUTICASONE PROPIONATE [Concomitant]
  4. MONTELUKAST SODIUM (MONTELUKAST SODIUM) [Concomitant]
  5. ACETYLSALICYLIC ACID (ACETLYSALICYLIC ACID) [Concomitant]

REACTIONS (2)
  - DRUG INEFFECTIVE [None]
  - HYPERTENSION [None]
